FAERS Safety Report 16976839 (Version 2)
Quarter: 2019Q4

REPORT INFORMATION
  Report Type: Report from Study
  Country: ES (occurrence: ES)
  Receive Date: 20191030
  Receipt Date: 20191111
  Transmission Date: 20200122
  Serious: Yes (Hospitalization)
  Sender: FDA-Public Use
  Company Number: ES-REGENERON PHARMACEUTICALS, INC.-2019-62497

PATIENT

DRUGS (7)
  1. SULODEXIDA [Concomitant]
     Indication: ADVERSE EVENT
     Dosage: 15 MG, BID
     Route: 048
  2. DAFLON                             /00426001/ [Concomitant]
     Active Substance: DIOSMIN
     Indication: OEDEMA PERIPHERAL
     Dosage: 500 MG, BID
     Route: 048
  3. PROBIOTICS                         /07325001/ [Concomitant]
     Active Substance: BIFIDOBACTERIUM LONGUM\LACTOBACILLUS ACIDOPHILUS\LACTOBACILLUS RHAMNOSUS
     Indication: ADVERSE EVENT
     Dosage: UNK
     Route: 048
     Dates: start: 20190912, end: 20190926
  4. CEMIPLIMAB [Suspect]
     Active Substance: CEMIPLIMAB
     Indication: CERVIX CARCINOMA
     Dosage: 350 MG, Q3W
     Route: 042
     Dates: start: 20190508, end: 20191002
  5. NAPROXENO                          /00256201/ [Concomitant]
     Active Substance: NAPROXEN
     Indication: PAIN
     Dosage: 550 MG, BID
     Route: 048
  6. FUROSEMIDE. [Concomitant]
     Active Substance: FUROSEMIDE
     Indication: OEDEMA PERIPHERAL
     Dosage: 40 MG, UNK
     Route: 048
  7. LOPERAMIDE [Concomitant]
     Active Substance: LOPERAMIDE
     Indication: ADVERSE EVENT
     Dosage: UNK
     Route: 048
     Dates: start: 20190912, end: 20190926

REACTIONS (1)
  - Renal failure [Recovered/Resolved]

NARRATIVE: CASE EVENT DATE: 20191023
